FAERS Safety Report 13332836 (Version 2)
Quarter: 2017Q1

REPORT INFORMATION
  Report Type: Spontaneous
  Country: BR (occurrence: BR)
  Receive Date: 20170314
  Receipt Date: 20170315
  Transmission Date: 20170428
  Serious: Yes (Other)
  Sender: FDA-Public Use
  Company Number: BR-009507513-1703BRA005625

PATIENT
  Age: 3 Year
  Sex: Female

DRUGS (1)
  1. VIATINE [Suspect]
     Active Substance: MONTELUKAST SODIUM
     Dosage: UNK
     Route: 055
     Dates: start: 20170307

REACTIONS (3)
  - Product use issue [Unknown]
  - Asphyxia [Recovered/Resolved]
  - Accidental exposure to product by child [Unknown]

NARRATIVE: CASE EVENT DATE: 20170307
